FAERS Safety Report 5917697-7 (Version None)
Quarter: 2008Q4

REPORT INFORMATION
  Report Type: 
  Country: None (occurrence: None)
  Receive Date: 20081009
  Receipt Date: 20081002
  Transmission Date: 20090506
  Serious: Yes (Death, Hospitalization)
  Sender: FDA-Public Use
  Company Number: 2008AL010973

PATIENT
  Age: 82 Year
  Sex: Male

DRUGS (1)
  1. DIGOXIN [Suspect]
     Dosage: PO
     Route: 048
     Dates: start: 20031201

REACTIONS (4)
  - CARDIAC DISORDER [None]
  - DIALYSIS [None]
  - PAIN [None]
  - RENAL IMPAIRMENT [None]
